FAERS Safety Report 6752392-6 (Version None)
Quarter: 2010Q2

REPORT INFORMATION
  Report Type: 
  Country: None (occurrence: None)
  Receive Date: 20100602
  Receipt Date: 20100520
  Transmission Date: 20101027
  Serious: Yes (Other)
  Sender: FDA-Public Use
  Company Number: GR-PFIZER INC-2010064285

PATIENT
  Age: 55 Year
  Sex: Female

DRUGS (1)
  1. EXEMESTANE [Suspect]
     Indication: BREAST CANCER
     Dosage: 25 MG, 1X/DAY
     Route: 048

REACTIONS (1)
  - CORNEAL EPITHELIAL MICROCYSTS [None]
